FAERS Safety Report 8512986-4 (Version None)
Quarter: 2012Q3

REPORT INFORMATION
  Report Type: 
  Country: None (occurrence: None)
  Receive Date: 20120716
  Receipt Date: 20120709
  Transmission Date: 20120928
  Serious: Yes (Hospitalization, Other)
  Sender: FDA-Public Use
  Company Number: US-US-EMD SERONO, INC.-7146676

PATIENT
  Sex: Female

DRUGS (2)
  1. ADDERALL 5 [Concomitant]
     Indication: ATTENTION DEFICIT/HYPERACTIVITY DISORDER
     Dates: start: 20050101
  2. REBIF [Suspect]
     Indication: MULTIPLE SCLEROSIS
     Route: 058
     Dates: start: 20090303

REACTIONS (7)
  - RECTAL HAEMORRHAGE [None]
  - OSTEOMYELITIS [None]
  - SPLENOMEGALY [None]
  - JOINT INJURY [None]
  - HEPATOMEGALY [None]
  - LYMPHADENOPATHY [None]
  - FALL [None]
